FAERS Safety Report 6223551-6 (Version None)
Quarter: 2009Q2

REPORT INFORMATION
  Report Type: 
  Country: None (occurrence: None)
  Receive Date: 20090610
  Receipt Date: 20090528
  Transmission Date: 20091009
  Serious: Yes (Other)
  Sender: FDA-Public Use
  Company Number: 230134J07USA

PATIENT
  Age: 50 Year
  Sex: Female

DRUGS (7)
  1. REBIF [Suspect]
     Indication: MULTIPLE SCLEROSIS
     Dosage: 44 MCG, 3 IN 1 WEEKS, SUBCUTANEOUS
     Route: 058
     Dates: start: 20031119
  2. CARDIAC DRUGS (ALL OTHER THERAPEUTIC PRODUCTS) [Concomitant]
  3. TOPROL-XL [Concomitant]
  4. DIGOXIN (DIGOXIN /00017701/) [Concomitant]
  5. DILTIAZEM [Concomitant]
  6. SPIRONOLACTONE [Concomitant]
  7. METHADONE HCL [Concomitant]

REACTIONS (3)
  - CARDIAC OUTPUT DECREASED [None]
  - FATIGUE [None]
  - FLUID RETENTION [None]
